FAERS Safety Report 6068059-6 (Version None)
Quarter: 2009Q1

REPORT INFORMATION
  Report Type: 
  Country: None (occurrence: None)
  Receive Date: 20090206
  Receipt Date: 20090128
  Transmission Date: 20090719
  Serious: Yes (Death, Hospitalization)
  Sender: FDA-Public Use
  Company Number: FR-AMGEN-US331094

PATIENT
  Age: 92 Year
  Sex: Male

DRUGS (2)
  1. ENBREL [Suspect]
     Indication: PSORIASIS
     Dosage: UNKNOWN
     Route: 058
  2. ANTIDIURETIC NOS [Concomitant]

REACTIONS (10)
  - ACUTE PRERENAL FAILURE [None]
  - ARTHRITIS [None]
  - CARDIAC ARREST [None]
  - CONDITION AGGRAVATED [None]
  - DEHYDRATION [None]
  - FAILURE TO THRIVE [None]
  - GOUT [None]
  - PULMONARY EMBOLISM [None]
  - PYREXIA [None]
  - RENAL FAILURE CHRONIC [None]
